FAERS Safety Report 25899562 (Version 2)
Quarter: 2025Q4

REPORT INFORMATION
  Report Type: Report from Study
  Country: US (occurrence: None)
  Receive Date: 20251009
  Receipt Date: 20251027
  Transmission Date: 20260118
  Serious: Yes (Other)
  Sender: UCB
  Company Number: US-UCBSA-2025063293

PATIENT
  Age: 33 Year
  Weight: 44.906 kg

DRUGS (5)
  1. FENFLURAMINE [Suspect]
     Active Substance: FENFLURAMINE
     Indication: Severe myoclonic epilepsy of infancy
     Dosage: 0.18 MILLIGRAM/KILOGRAM, 2X/DAY (BID) (0.22 MG/DAY)
  2. FENFLURAMINE [Suspect]
     Active Substance: FENFLURAMINE
     Dosage: 0.21 MILLIGRAM PER KILOGRAM PER DAY TOTALLY 9.24 MILLIGRAM PER DAY
  3. FENFLURAMINE [Suspect]
     Active Substance: FENFLURAMINE
     Dosage: 0.15 MILLIGRAM/KILOGRAM, 2X/DAY (BID) (0.30 MILLIGRAM/DAY)
  4. FENFLURAMINE [Suspect]
     Active Substance: FENFLURAMINE
     Dosage: 0.11 MILLIGRAM/KILOGRAM, 2X/DAY (BID) (0.37 MILLIGRAM/DAY)
  5. CANNABIDIOL [Concomitant]
     Active Substance: CANNABIDIOL
     Indication: Product used for unknown indication
     Dosage: 350 MILLIGRAM, 2X/DAY (BID)

REACTIONS (1)
  - Aortic valve thickening [Unknown]
